FAERS Safety Report 13157000 (Version 1)
Quarter: 2017Q1

REPORT INFORMATION
  Report Type: Spontaneous
  Country: US (occurrence: US)
  Receive Date: 20170127
  Receipt Date: 20170127
  Transmission Date: 20170428
  Serious: Yes (Hospitalization, Other)
  Sender: FDA-Public Use
  Company Number: US-ZYDUS-013413

PATIENT
  Age: 20 Year
  Sex: Male

DRUGS (1)
  1. WARFARIN [Suspect]
     Active Substance: WARFARIN
     Indication: PRODUCT USED FOR UNKNOWN INDICATION
     Route: 065

REACTIONS (24)
  - Arterial rupture [Unknown]
  - Intra-abdominal haematoma [Unknown]
  - Vein collapse [Unknown]
  - Diarrhoea [Unknown]
  - Conjunctival pallor [Unknown]
  - Metabolic acidosis [Unknown]
  - Gastrointestinal sounds abnormal [Unknown]
  - Coagulopathy [Unknown]
  - CT hypotension complex [Unknown]
  - Peritoneal haemorrhage [Unknown]
  - Vomiting [Unknown]
  - Abdominal pain [Unknown]
  - Chills [Unknown]
  - Pulse abnormal [Unknown]
  - Anaemia [Unknown]
  - Tachypnoea [Unknown]
  - Oesophageal rupture [Unknown]
  - Intra-abdominal haemorrhage [Unknown]
  - Lid sulcus deepened [Unknown]
  - Abdominal tenderness [Unknown]
  - Hyperdynamic left ventricle [Unknown]
  - Malaise [Unknown]
  - Tachycardia [Unknown]
  - Pallor [Unknown]
